FAERS Safety Report 6679844-1 (Version None)
Quarter: 2010Q2

REPORT INFORMATION
  Report Type: 
  Country: None (occurrence: None)
  Receive Date: 20100413
  Receipt Date: 20100406
  Transmission Date: 20101027
  Serious: Yes (Hospitalization)
  Sender: FDA-Public Use
  Company Number: US-RB-006450-10

PATIENT
  Sex: Male

DRUGS (2)
  1. SUBOXONE [Suspect]
     Route: 060
     Dates: start: 20080101, end: 20100201
  2. SUBOXONE [Suspect]
     Route: 060
     Dates: start: 20100301

REACTIONS (1)
  - WOUND [None]
